FAERS Safety Report 21978359 (Version 1)
Quarter: 2023Q1

REPORT INFORMATION
  Report Type: Spontaneous
  Country: None (occurrence: CA)
  Receive Date: 20230210
  Receipt Date: 20230210
  Transmission Date: 20230418
  Serious: Yes (Hospitalization)
  Sender: FDA-Public Use
  Company Number: CA-B.Braun Medical Inc.-2137752

PATIENT
  Age: 66 Year
  Sex: Male
  Weight: 54 kg

DRUGS (14)
  1. HEPARIN SODIUM [Suspect]
     Active Substance: HEPARIN SODIUM
     Indication: Thrombosis prophylaxis
     Route: 058
  2. ASPIRIN [Concomitant]
     Active Substance: ASPIRIN
  3. CLONAZEPAM [Concomitant]
     Active Substance: CLONAZEPAM
  4. CYANOCOBALAMIN [Concomitant]
     Active Substance: CYANOCOBALAMIN
  5. LEVOTHYROXINE [Concomitant]
     Active Substance: LEVOTHYROXINE
  6. MOXIFLOXACIN [Concomitant]
     Active Substance: MOXIFLOXACIN
  7. OLANZAPINE [Concomitant]
     Active Substance: OLANZAPINE
  8. Pantoprazole,powder for solution [Concomitant]
     Route: 042
  9. PRAVASTATIN SODIUM [Concomitant]
     Active Substance: PRAVASTATIN SODIUM
  10. PSYLLIUM HUSK [Concomitant]
     Active Substance: PSYLLIUM HUSK
  11. RISPERIDONE [Concomitant]
     Active Substance: RISPERIDONE
  12. ALBUTEROL [Concomitant]
     Active Substance: ALBUTEROL
     Route: 042
  13. Thiamine tablets [Concomitant]
  14. TIOTROPIUM BROMIDE [Concomitant]
     Active Substance: TIOTROPIUM BROMIDE

REACTIONS (2)
  - Abdominal pain [Unknown]
  - Abdominal wall haematoma [Unknown]
